FAERS Safety Report 18592800 (Version 7)
Quarter: 2021Q1

REPORT INFORMATION
  Report Type: Report from Study
  Country: FR (occurrence: FR)
  Receive Date: 20201208
  Receipt Date: 20210326
  Transmission Date: 20210419
  Serious: Yes (Death, Life-Threatening)
  Sender: FDA-Public Use
  Company Number: FR-CELGENEUS-FRA-20201201532

PATIENT
  Age: 59 Year
  Sex: Female
  Weight: 84.5 kg

DRUGS (24)
  1. AMOXICILLIN. [Concomitant]
     Active Substance: AMOXICILLIN
     Indication: SINUSITIS
     Route: 065
     Dates: start: 2020
  2. EMEND [Concomitant]
     Active Substance: APREPITANT
     Indication: ANTIEMETIC SUPPORTIVE CARE
     Route: 065
     Dates: start: 2020
  3. VITAMIN K [Concomitant]
     Active Substance: PHYTONADIONE
     Indication: COAGULOPATHY
     Route: 065
     Dates: start: 2020
  4. ARACYTINE [Concomitant]
     Active Substance: CYTARABINE
     Indication: RASH
     Route: 065
     Dates: start: 2020
  5. ARIXTRA [Concomitant]
     Active Substance: FONDAPARINUX SODIUM
     Indication: RASH
     Route: 065
     Dates: start: 2020, end: 202011
  6. LASILIX [Concomitant]
     Active Substance: FUROSEMIDE
     Indication: FLUID RETENTION
     Route: 065
     Dates: start: 2020
  7. CYTARABINE. [Suspect]
     Active Substance: CYTARABINE
     Dosage: 3860 MILLIGRAM
     Route: 065
     Dates: start: 20201127, end: 20201202
  8. LOVENOX [Concomitant]
     Active Substance: ENOXAPARIN SODIUM
     Indication: ANTICOAGULANT THERAPY
     Route: 065
     Dates: start: 2020
  9. AMBISOME [Concomitant]
     Active Substance: AMPHOTERICIN B
     Route: 065
  10. G?CSF [Concomitant]
     Active Substance: GRANULOCYTE COLONY-STIMULATING FACTOR NOS
     Indication: APLASIA
     Route: 065
     Dates: start: 2020
  11. CORDARONE [Concomitant]
     Active Substance: AMIODARONE HYDROCHLORIDE
     Indication: ARRHYTHMIA
     Route: 065
     Dates: start: 2020
  12. MIDAZOLAM. [Concomitant]
     Active Substance: MIDAZOLAM
     Indication: SEDATIVE THERAPY
     Route: 065
     Dates: start: 2020
  13. AG?221 [Suspect]
     Active Substance: ENASIDENIB
     Indication: ACUTE MYELOID LEUKAEMIA
     Dosage: 100 MILLIGRAM
     Route: 048
     Dates: start: 20201127, end: 20201204
  14. TAZOCILLIN [Concomitant]
     Active Substance: PIPERACILLIN SODIUM\TAZOBACTAM SODIUM
     Indication: SEPSIS
     Route: 065
     Dates: start: 20201118, end: 20201202
  15. TAZOCILLIN [Concomitant]
     Active Substance: PIPERACILLIN SODIUM\TAZOBACTAM SODIUM
     Indication: DIARRHOEA
  16. MYCAFUNGINE [Concomitant]
     Indication: ANTIFUNGAL TREATMENT
     Route: 065
     Dates: start: 2020
  17. AMBISOME [Concomitant]
     Active Substance: AMPHOTERICIN B
     Route: 065
  18. CYTARABINE. [Suspect]
     Active Substance: CYTARABINE
     Dosage: 1930 MILLIGRAM
     Route: 065
     Dates: start: 20201127
  19. DAUNORUBICIN [Suspect]
     Active Substance: DAUNORUBICIN
     Indication: ACUTE MYELOID LEUKAEMIA
     Dosage: 116 MILLIGRAM
     Route: 065
     Dates: start: 20201127, end: 20201129
  20. GAVISCON [Concomitant]
     Active Substance: ALUMINUM HYDROXIDE\MAGNESIUM CARBONATE
     Indication: ANALGESIC THERAPY
     Route: 065
     Dates: start: 2020
  21. PRIMPERAN [Concomitant]
     Active Substance: METOCLOPRAMIDE HYDROCHLORIDE
     Indication: ANTIEMETIC SUPPORTIVE CARE
     Route: 065
     Dates: start: 2020
  22. CYTARABINE. [Suspect]
     Active Substance: CYTARABINE
     Indication: ACUTE MYELOID LEUKAEMIA
     Dosage: 200 MILLIGRAM/SQ. METER
     Route: 065
     Dates: start: 202011
  23. AMBISOME [Concomitant]
     Active Substance: AMPHOTERICIN B
     Indication: ANTIFUNGAL TREATMENT
     Route: 065
     Dates: start: 20201124
  24. PANTOPRAZOLE [Concomitant]
     Active Substance: PANTOPRAZOLE
     Indication: ABDOMINAL PAIN UPPER
     Route: 065
     Dates: start: 2020

REACTIONS (2)
  - Subdural haematoma [Fatal]
  - Pneumonia fungal [Not Recovered/Not Resolved]

NARRATIVE: CASE EVENT DATE: 20201124
